FAERS Safety Report 15020312 (Version 6)
Quarter: 2019Q4

REPORT INFORMATION
  Report Type: Spontaneous
  Country: FR (occurrence: FR)
  Receive Date: 20180618
  Receipt Date: 20191218
  Transmission Date: 20200122
  Serious: Yes (Death, Life-Threatening, Hospitalization, Other)
  Sender: FDA-Public Use
  Company Number: FR-SUN PHARMACEUTICAL INDUSTRIES LTD-2018RR-175943

PATIENT
  Age: 80 Year
  Sex: Female
  Weight: 50 kg

DRUGS (22)
  1. LEVOTHYROXINE SODIUM. [Suspect]
     Active Substance: LEVOTHYROXINE SODIUM
     Indication: HYPOTHYROIDISM
     Dosage: 1 DOSAGE FORM, DAILY
     Route: 048
  2. PARACETAMOL [Suspect]
     Active Substance: ACETAMINOPHEN
     Indication: PAIN
     Dosage: 1 DF, QD
     Route: 042
     Dates: start: 20170911, end: 20170911
  3. CALCIDOSE [CALCIUM CARBONATE/COLECALCIFEROL] [Suspect]
     Active Substance: CALCIUM CARBONATE\CHOLECALCIFEROL
     Indication: OSTEOPOROSIS PROPHYLAXIS
     Dosage: 1 DOSAGE FORM, DAILY
     Route: 042
     Dates: start: 20170911, end: 20170911
  4. CALCIDOSE [CALCIUM CARBONATE/COLECALCIFEROL] [Suspect]
     Active Substance: CALCIUM CARBONATE\CHOLECALCIFEROL
     Dosage: 1 UNK
     Route: 048
  5. CORDARONE [Suspect]
     Active Substance: AMIODARONE HYDROCHLORIDE
     Indication: ARRHYTHMIA
     Dosage: SCORED TABLET, 1 DF= 1 T, INTERVAL 1 DAY
     Route: 040
     Dates: start: 20170911, end: 20170911
  6. CORDARONE [Suspect]
     Active Substance: AMIODARONE HYDROCHLORIDE
     Dosage: 200 MILLIGRAM, BID
     Route: 048
     Dates: start: 20170911, end: 20170911
  7. LASIX [Suspect]
     Active Substance: FUROSEMIDE
     Indication: CARDIAC FAILURE
     Dosage: 20 MILLIGRAM, QD
     Route: 048
  8. CORDARONE [Suspect]
     Active Substance: AMIODARONE HYDROCHLORIDE
     Dosage: 1 DOSAGE FORM, DAILY
     Route: 048
  9. ELIQUIS [Suspect]
     Active Substance: APIXABAN
     Indication: THROMBOSIS PROPHYLAXIS
     Dosage: 1 DOSAGE FORM, DAILY
     Route: 048
     Dates: start: 20170911, end: 20170911
  10. PARACETAMOL [Suspect]
     Active Substance: ACETAMINOPHEN
     Dosage: 500 MILLIGRAM, BID
     Route: 040
     Dates: start: 20170911, end: 20170911
  11. PREDNISONE ARROW [Suspect]
     Active Substance: PREDNISONE
     Dosage: 45 MG, INTERVAL 1 DAY
     Route: 042
     Dates: start: 20170911, end: 20170911
  12. ARIPIPRAZOLE. [Concomitant]
     Active Substance: ARIPIPRAZOLE
     Indication: PRODUCT USED FOR UNKNOWN INDICATION
     Dosage: UNK
     Route: 065
  13. LEVOTHYROX [Suspect]
     Active Substance: LEVOTHYROXINE
     Indication: HYPOTHYROIDISM
     Dosage: 175 UG, QD
     Route: 042
     Dates: start: 20170911, end: 20170911
  14. METHOTREXATE. [Concomitant]
     Active Substance: METHOTREXATE
     Indication: NEOPLASM
     Dosage: 0.3 MG/KG, QWK
     Route: 065
     Dates: start: 20170801
  15. PREDNISONE ARROW [Suspect]
     Active Substance: PREDNISONE
     Indication: DERMATOMYOSITIS
     Dosage: 1 DOSAGE FORM, QD
     Route: 048
  16. DIGOXIN. [Suspect]
     Active Substance: DIGOXIN
     Indication: ARRHYTHMIA
     Dosage: 0.25/ 1 DF, QD
     Route: 042
     Dates: start: 20170911, end: 20170911
  17. CORDARONE [Suspect]
     Active Substance: AMIODARONE HYDROCHLORIDE
     Dosage: 1 DF= 1 T, INTERVAL 1 DAY
     Route: 042
     Dates: start: 20170911, end: 20170911
  18. FUROSEMIDE. [Suspect]
     Active Substance: FUROSEMIDE
     Indication: CARDIAC FAILURE
     Dosage: 20 MG, DAILY
     Route: 042
     Dates: start: 20170911, end: 20170911
  19. PARACETAMOL [Suspect]
     Active Substance: ACETAMINOPHEN
     Indication: PAIN
     Dosage: 500 MILLIGRAM, QD, CAPSULE
     Route: 048
  20. ELIQUIS [Suspect]
     Active Substance: APIXABAN
     Indication: THROMBOSIS PROPHYLAXIS
     Dosage: 1 DOSAGE FORM, DAILY
     Route: 042
     Dates: start: 20170911, end: 20170911
  21. PREDNISONE. [Suspect]
     Active Substance: PREDNISONE
     Indication: DERMATOMYOSITIS
     Dosage: 45 MG, INTERVAL 1 DAY
     Route: 040
     Dates: start: 20170911, end: 20170911
  22. LASIX [Suspect]
     Active Substance: FUROSEMIDE
     Dosage: 20 MILLIGRAM, DAILY
     Route: 042
     Dates: start: 20170911, end: 20170911

REACTIONS (4)
  - Incorrect route of product administration [Fatal]
  - Off label use [Fatal]
  - Medication error [Fatal]
  - Cardiac arrest [Fatal]

NARRATIVE: CASE EVENT DATE: 20170911
